FAERS Safety Report 6708428-1 (Version None)
Quarter: 2010Q2

REPORT INFORMATION
  Report Type: 
  Country: None (occurrence: None)
  Receive Date: 20100503
  Receipt Date: 20090317
  Transmission Date: 20101027
  Serious: No
  Sender: FDA-Public Use
  Company Number: US-ASTRAZENECA-2009UW06875

PATIENT
  Age: 30 Year
  Sex: Female

DRUGS (3)
  1. NEXIUM [Suspect]
     Indication: CROHN'S DISEASE
     Route: 048
  2. PEGINTERFERON ALFA-2A [Suspect]
     Indication: HEPATITIS C VIRUS TEST
     Dosage: 180 UG
     Dates: start: 20090220
  3. RIBAVIRIN [Suspect]
     Indication: HEPATITIS C VIRUS TEST
     Dosage: 1200 MG
     Dates: start: 20090220

REACTIONS (1)
  - CROHN'S DISEASE [None]
